FAERS Safety Report 10065012 (Version 2)
Quarter: 2014Q2

REPORT INFORMATION
  Report Type: Spontaneous
  Country: US (occurrence: None)
  Receive Date: 20140404
  Receipt Date: 20140410
  Transmission Date: 20141212
  Serious: Yes (Hospitalization, Other)
  Sender: FDA-Public Use
  Company Number: UTC-046598

PATIENT
  Age: 69 Year
  Sex: Female
  Weight: 72.57 kg

DRUGS (1)
  1. REMODULIN [Suspect]
     Indication: COR PULMONALE CHRONIC
     Dosage: 28.8 UG/KG (0.02 UG/KG, 1 IN 1 MIN),INTRAVENOUS DRIP
     Route: 041
     Dates: start: 20120504

REACTIONS (2)
  - Confusional state [None]
  - Drug dose omission [None]
